FAERS Safety Report 25482157 (Version 2)
Quarter: 2025Q2

REPORT INFORMATION
  Report Type: Spontaneous
  Country: GB (occurrence: GB)
  Receive Date: 20250626
  Receipt Date: 20250627
  Transmission Date: 20250717
  Serious: Yes (Other)
  Sender: CELLTRION
  Company Number: None

PATIENT

DRUGS (1)
  1. YUFLYMA [Suspect]
     Active Substance: ADALIMUMAB-AATY
     Indication: Crohn^s disease
     Dosage: 40MG ONCE EVERY FOURTEEN DAYS
     Dates: start: 20250113, end: 20250505

REACTIONS (6)
  - Conjunctivitis viral [Recovered/Resolved]
  - Anal fissure [Recovered/Resolved]
  - Decreased immune responsiveness [Unknown]
  - Fatigue [Recovered/Resolved with Sequelae]
  - Hyperhidrosis [Not Recovered/Not Resolved]
  - Influenza [Recovered/Resolved with Sequelae]

NARRATIVE: CASE EVENT DATE: 20250301
